FAERS Safety Report 23068597 (Version 1)
Quarter: 2023Q4

REPORT INFORMATION
  Report Type: Spontaneous
  Country: US (occurrence: None)
  Receive Date: 20231014
  Receipt Date: 20231014
  Transmission Date: 20240110
  Serious: No
  Sender: FDA-Public Use
  Company Number: None

PATIENT
  Age: 56 Year
  Sex: Male
  Weight: 76.5 kg

DRUGS (9)
  1. TESTOSTERONE CYPIONATE [Suspect]
     Active Substance: TESTOSTERONE CYPIONATE
     Indication: Blood testosterone decreased
     Dosage: OTHER QUANTITY : 1 INJECTION(S);?OTHER FREQUENCY : EVERY 3 WEEKS;?
     Route: 030
  2. OZEMPIC [Concomitant]
     Active Substance: SEMAGLUTIDE
  3. TOUJEO [Concomitant]
     Active Substance: INSULIN GLARGINE
  4. GABAPENTIN [Concomitant]
     Active Substance: GABAPENTIN
  5. DOXYCYCLINE HYCLATE [Concomitant]
     Active Substance: DOXYCYCLINE HYCLATE
  6. LORATADINE [Concomitant]
     Active Substance: LORATADINE
  7. MUCINEX [Concomitant]
     Active Substance: GUAIFENESIN
  8. ROSUVASTATIN [Concomitant]
     Active Substance: ROSUVASTATIN
  9. VITAMIN D3 [Concomitant]
     Active Substance: CHOLECALCIFEROL

REACTIONS (11)
  - Eye paraesthesia [None]
  - Muscle tightness [None]
  - Dysgeusia [None]
  - Hypertension [None]
  - Ocular hyperaemia [None]
  - Presyncope [None]
  - Headache [None]
  - Muscle tightness [None]
  - Chest pain [None]
  - Hot flush [None]
  - Myalgia [None]

NARRATIVE: CASE EVENT DATE: 20231010
